FAERS Safety Report 4617950-3 (Version None)
Quarter: 2005Q1

REPORT INFORMATION
  Report Type: 
  Country: None (occurrence: None)
  Receive Date: 20050322
  Receipt Date: 20050118
  Transmission Date: 20050727
  Serious: Yes (Other)
  Sender: FDA-Public Use
  Company Number: 001#1#2005-00019

PATIENT
  Age: 79 Year
  Sex: Female

DRUGS (5)
  1. ALPROSTADIL [Suspect]
     Indication: PERIPHERAL OCCLUSIVE DISEASE
     Dosage: 2 AMPOULES OVER 2 HOURS INTRAVENOUS
     Route: 042
  2. SODIUM CHLORIDE [Suspect]
     Indication: PERIPHERAL OCCLUSIVE DISEASE
     Dosage: 250 ML INTRAVENOUS
     Route: 042
  3. PENICILLIN [Concomitant]
  4. ALT-INSULIN (FRUCTOSE, INSULIN ZINC SUSPENSION) [Concomitant]
  5. ENOXAPARIN SODIUM [Concomitant]

REACTIONS (4)
  - CELLULITIS [None]
  - DIABETES MELLITUS NON-INSULIN-DEPENDENT [None]
  - TACHYARRHYTHMIA [None]
  - TACHYCARDIA [None]
